FAERS Safety Report 16232532 (Version 1)
Quarter: 2019Q2

REPORT INFORMATION
  Report Type: Spontaneous
  Country: US (occurrence: US)
  Receive Date: 20190423
  Receipt Date: 20190423
  Transmission Date: 20190711
  Serious: Yes (Life-Threatening, Hospitalization)
  Sender: FDA-Public Use
  Company Number: None

PATIENT
  Age: 58 Year
  Sex: Male
  Weight: 90 kg

DRUGS (3)
  1. SODIUM CHLORIDE 0.9% SOL FOR INJECTION [Concomitant]
     Active Substance: SODIUM CHLORIDE
     Dates: end: 20190417
  2. STERILE WATER FOR INJECTION [Concomitant]
     Active Substance: WATER
     Dates: start: 20190417, end: 20190417
  3. VANCOMYCIN [Suspect]
     Active Substance: VANCOMYCIN
     Indication: CELLULITIS
     Route: 042
     Dates: start: 20190417, end: 20190417

REACTIONS (3)
  - Respiratory distress [None]
  - Cyanosis [None]
  - Cardiac arrest [None]

NARRATIVE: CASE EVENT DATE: 20190417
